FAERS Safety Report 8181177-1 (Version None)
Quarter: 2012Q1

REPORT INFORMATION
  Report Type: 
  Country: None (occurrence: None)
  Receive Date: 20120302
  Receipt Date: 20120224
  Transmission Date: 20120608
  Serious: Yes (Other)
  Sender: FDA-Public Use
  Company Number: US-GLAXOSMITHKLINE-A0968082A

PATIENT
  Age: 28 Year
  Sex: Male
  Weight: 86.4 kg

DRUGS (4)
  1. VITAMIN D [Concomitant]
  2. IBUPROFEN (ADVIL) [Suspect]
     Indication: HEADACHE
     Dosage: 200MG PER DAY
     Route: 048
     Dates: start: 20111201, end: 20120115
  3. FISH OIL [Concomitant]
  4. WELLBUTRIN [Suspect]
     Indication: DEPRESSION
     Dosage: 450MG PER DAY
     Route: 048

REACTIONS (4)
  - GASTRIC HAEMORRHAGE [None]
  - HEADACHE [None]
  - ABDOMINAL PAIN UPPER [None]
  - FAECES HARD [None]
